FAERS Safety Report 5585373-9 (Version None)
Quarter: 2008Q1

REPORT INFORMATION
  Report Type: 
  Country: None (occurrence: None)
  Receive Date: 20080104
  Receipt Date: 20071221
  Transmission Date: 20080703
  Serious: Yes (Disabling)
  Sender: FDA-Public Use
  Company Number: 20070331

PATIENT
  Sex: Male

DRUGS (1)
  1. VENOFER [Suspect]
     Indication: IRON DEFICIENCY ANAEMIA
     Dosage: 100 MG EVERY 2 DAYS INTRAVENOUS
     Route: 042
     Dates: start: 20070701, end: 20070701

REACTIONS (1)
  - DYSGEUSIA [None]
